FAERS Safety Report 21173200 (Version 1)
Quarter: 2022Q3

REPORT INFORMATION
  Report Type: Report from Study
  Country: DE (occurrence: DE)
  Receive Date: 20220804
  Receipt Date: 20220804
  Transmission Date: 20221027
  Serious: Yes (Hospitalization)
  Sender: FDA-Public Use
  Company Number: DE-BAXTER-2022BAX013131

PATIENT
  Sex: Female

DRUGS (4)
  1. CLINIMIX E [Suspect]
     Active Substance: ALANINE\AMINO ACIDS\ARGININE\CALCIUM CHLORIDE\DEXTROSE\GLYCINE\HISTIDINE\ISOLEUCINE\LEUCINE\LYSINE\M
     Indication: Parenteral nutrition
     Dosage: 1000 ML, THREE TIMES A WEEK AT AN INFUSION RATE OF 60 MILLILITERS PER HOUR (ML/HR)
     Route: 042
     Dates: end: 20220726
  2. CERNEVIT [Suspect]
     Active Substance: VITAMINS
     Indication: Parenteral nutrition
     Dosage: 750 MG,  THREE TIMES A WEEK AT AN INFUSION RATE OF 60 MILLILITERS PER HOUR (ML/HR)
     Route: 042
     Dates: end: 20220621
  3. ELECTROLYTES NOS\MINERALS [Suspect]
     Active Substance: ELECTROLYTES NOS\MINERALS
     Indication: Parenteral nutrition
     Dosage: 10 ML, THREE TIMES A WEEK AT AN INFUSION RATE OF 60 MILLILITERS PER HOUR (ML/HR)
     Route: 042
     Dates: end: 20220621
  4. UNSPECIFIED INGREDIENT [Suspect]
     Active Substance: UNSPECIFIED INGREDIENT
     Dosage: UNK
     Route: 065

REACTIONS (1)
  - Fall [Recovered/Resolved]

NARRATIVE: CASE EVENT DATE: 20220622
